FAERS Safety Report 19923674 (Version 1)
Quarter: 2021Q4

REPORT INFORMATION
  Report Type: Spontaneous
  Country: US (occurrence: US)
  Receive Date: 20211006
  Receipt Date: 20211006
  Transmission Date: 20220303
  Serious: Yes (Hospitalization, Other)
  Sender: FDA-Public Use
  Company Number: US-ACCORD-238595

PATIENT
  Age: 20 Year
  Sex: Female

DRUGS (9)
  1. ETOPOSIDE [Suspect]
     Active Substance: ETOPOSIDE
     Indication: Gestational trophoblastic tumour
     Dosage: 100 MG/M2, 6 CYCLES, ON HD 1 AND 2
     Dates: start: 20210228, end: 20210430
  2. CISPLATIN [Suspect]
     Active Substance: CISPLATIN
     Indication: Gestational trophoblastic tumour
     Dosage: ON DAY 1 AND 2
     Dates: start: 2021
  3. METHOTREXATE [Suspect]
     Active Substance: METHOTREXATE
     Indication: Gestational trophoblastic tumour
     Dosage: 300 MG/M2, 6 CYCLES
     Dates: start: 20210228, end: 20210430
  4. DACTINOMYCIN [Suspect]
     Active Substance: DACTINOMYCIN
     Indication: Gestational trophoblastic tumour
     Dosage: 0.5 MG ON DAY 1 AND 2, 6 CYCLES
     Dates: start: 20210228, end: 20210430
  5. CYCLOPHOSPHAMIDE [Suspect]
     Active Substance: CYCLOPHOSPHAMIDE
     Indication: Gestational trophoblastic tumour
     Dosage: 600 MG/M2 ON DAY 8, 6 CYCLES
     Dates: start: 20210228, end: 20210430
  6. VINCRISTINE [Suspect]
     Active Substance: VINCRISTINE
     Indication: Gestational trophoblastic tumour
     Dosage: 1 MG/M2 ON DAY 8, 6 CYCLES
     Dates: start: 20210228, end: 20210430
  7. APREPITANT [Concomitant]
     Active Substance: APREPITANT
     Dosage: ON DAY 1
     Dates: start: 2021
  8. HEPARIN [Concomitant]
     Active Substance: HEPARIN SODIUM
  9. DEXAMETHASONE [Concomitant]
     Active Substance: DEXAMETHASONE
     Dosage: ON DAY 1
     Dates: start: 2021

REACTIONS (7)
  - Thrombocytopenia [Recovered/Resolved]
  - Neutropenia [Recovered/Resolved]
  - Off label use [Unknown]
  - Tachycardia [Recovered/Resolved]
  - Hypoxia [Recovered/Resolved]
  - Device failure [Unknown]
  - Hypotension [Recovered/Resolved]

NARRATIVE: CASE EVENT DATE: 20210101
